FAERS Safety Report 15356928 (Version 1)
Quarter: 2018Q3

REPORT INFORMATION
  Report Type: Spontaneous
  Country: US (occurrence: US)
  Receive Date: 20180906
  Receipt Date: 20180906
  Transmission Date: 20181010
  Serious: No
  Sender: FDA-Public Use
  Company Number: US-SA-2018SA206004

PATIENT
  Age: 66 Year
  Sex: Female

DRUGS (2)
  1. GOLD BOND MEDICATED PAIN AND ITCH RELIEF [Suspect]
     Active Substance: LIDOCAINE HYDROCHLORIDE
     Indication: ARTHROPOD BITE
  2. GOLD BOND MEDICATED PAIN AND ITCH RELIEF [Suspect]
     Active Substance: LIDOCAINE HYDROCHLORIDE
     Indication: PRODUCT USED FOR UNKNOWN INDICATION
     Dosage: UNK
     Route: 065
     Dates: start: 20180722, end: 20180727

REACTIONS (1)
  - Drug ineffective [Unknown]
